FAERS Safety Report 18356857 (Version 1)
Quarter: 2020Q4

REPORT INFORMATION
  Report Type: Spontaneous
  Country: CA (occurrence: CA)
  Receive Date: 20201007
  Receipt Date: 20201007
  Transmission Date: 20210114
  Serious: Yes (Other)
  Sender: FDA-Public Use
  Company Number: CA-JNJFOC-20200953884

PATIENT
  Age: 19 Year
  Sex: Female
  Weight: 63 kg

DRUGS (7)
  1. PREDNISONE. [Concomitant]
     Active Substance: PREDNISONE
  2. ASACOL [Concomitant]
     Active Substance: MESALAMINE
  3. MESACOL                            /00747601/ [Concomitant]
     Active Substance: MESALAMINE
     Route: 065
  4. INFLIXIMAB, RECOMBINANT [Suspect]
     Active Substance: INFLIXIMAB
     Indication: COLITIS ULCERATIVE
     Route: 042
  5. BUSCOPAN [Concomitant]
     Active Substance: BUTYLSCOPOLAMINE BROMIDE
     Route: 065
  6. COBAMAMIDE;FOLIC ACID;IRON;ZINC ASCORBATE [Concomitant]
     Route: 065
  7. PROBIOTICS NOS [Concomitant]
     Active Substance: PROBIOTICS NOS

REACTIONS (8)
  - Abdominal pain [Recovered/Resolved]
  - Burning sensation [Recovered/Resolved]
  - Condition aggravated [Recovered/Resolved]
  - Inflammatory bowel disease [Recovered/Resolved]
  - Off label use [Recovered/Resolved]
  - Heart rate irregular [Recovered/Resolved]
  - Menstruation irregular [Recovered/Resolved]
  - Intentional product use issue [Recovered/Resolved]
